FAERS Safety Report 8246452-0 (Version None)
Quarter: 2012Q1

REPORT INFORMATION
  Report Type: 
  Country: None (occurrence: None)
  Receive Date: 20120316
  Receipt Date: 20110614
  Transmission Date: 20120608
  Serious: No
  Sender: FDA-Public Use
  Company Number: PHHY2011US53707

PATIENT
  Age: 58 Year
  Sex: Male
  Weight: 112 kg

DRUGS (5)
  1. FOSAMAX [Concomitant]
  2. ILARIS [Suspect]
     Indication: CRYOPYRIN ASSOCIATED PERIODIC SYNDROME
     Dosage: ONE VIRAL INJECTION, INTRAVENOUS
     Route: 042
     Dates: start: 20100817
  3. ZYRTEC [Concomitant]
  4. HCL [Concomitant]
  5. SERTRALINE HYDROCHLORIDE [Concomitant]

REACTIONS (3)
  - DRUG INEFFECTIVE [None]
  - SWOLLEN TONGUE [None]
  - URTICARIA [None]
